FAERS Safety Report 14085079 (Version 4)
Quarter: 2018Q2

REPORT INFORMATION
  Report Type: Report from Study
  Country: US (occurrence: US)
  Receive Date: 20171013
  Receipt Date: 20180630
  Transmission Date: 20180711
  Serious: Yes (Hospitalization, Other)
  Sender: FDA-Public Use
  Company Number: US-TESARO, INC-US-2017TSO03153

PATIENT

DRUGS (4)
  1. ZEJULA [Suspect]
     Active Substance: NIRAPARIB
     Indication: OVARIAN CANCER
     Dosage: 300 MG, QD HOLD FOR 2 WEEKS
     Route: 048
     Dates: start: 20170830, end: 20171023
  2. ZEJULA [Suspect]
     Active Substance: NIRAPARIB
     Dosage: 300 MG, QD
     Route: 048
     Dates: start: 20171116, end: 201711
  3. ZEJULA [Suspect]
     Active Substance: NIRAPARIB
     Indication: OVARIAN CANCER RECURRENT
     Dosage: 100 MG, QD
     Route: 048
     Dates: start: 20171114, end: 20171114
  4. ZEJULA [Suspect]
     Active Substance: NIRAPARIB
     Dosage: 200 MG, QD
     Route: 048
     Dates: start: 20171115, end: 20171115

REACTIONS (8)
  - Platelet count decreased [Recovered/Resolved]
  - Transfusion [Not Recovered/Not Resolved]
  - Intentional product misuse [Recovered/Resolved]
  - Epistaxis [Recovered/Resolved]
  - Drug intolerance [Unknown]
  - Petechiae [Recovered/Resolved]
  - Blood count abnormal [Unknown]
  - Mesenteric neoplasm [Unknown]

NARRATIVE: CASE EVENT DATE: 201711
